APPROVED DRUG PRODUCT: NIRAVAM
Active Ingredient: ALPRAZOLAM
Strength: 0.25MG **Federal Register determination that product was not discontinued or withdrawn for safety or effectiveness reasons**
Dosage Form/Route: TABLET, ORALLY DISINTEGRATING;ORAL
Application: N021726 | Product #001
Applicant: UCB INC
Approved: Jan 19, 2005 | RLD: Yes | RS: No | Type: DISCN